FAERS Safety Report 16476890 (Version 4)
Quarter: 2019Q4

REPORT INFORMATION
  Report Type: Spontaneous
  Country: FI (occurrence: FI)
  Receive Date: 20190626
  Receipt Date: 20191111
  Transmission Date: 20200122
  Serious: Yes (Other)
  Sender: FDA-Public Use
  Company Number: FI-SA-2019SA167606

PATIENT
  Age: 61 Year
  Sex: Female

DRUGS (2)
  1. KLEXANE [Suspect]
     Active Substance: ENOXAPARIN
     Dosage: 1 DF, QD
     Route: 065
     Dates: start: 201903, end: 201905
  2. KLEXANE [Suspect]
     Active Substance: ENOXAPARIN
     Dosage: 1 DF, BID
     Route: 065
     Dates: start: 201905

REACTIONS (2)
  - Injection site bruising [Recovered/Resolved with Sequelae]
  - Atrial fibrillation [Unknown]

NARRATIVE: CASE EVENT DATE: 201903
